FAERS Safety Report 5715530-X (Version None)
Quarter: 2008Q2

REPORT INFORMATION
  Report Type: 
  Country: None (occurrence: None)
  Receive Date: 20080422
  Receipt Date: 20080407
  Transmission Date: 20081010
  Serious: Yes (Hospitalization, Other)
  Sender: FDA-Public Use
  Company Number: 2007BI014413

PATIENT
  Age: 61 Year
  Sex: Female

DRUGS (1)
  1. AVONEX [Suspect]
     Indication: MULTIPLE SCLEROSIS
     Dosage: IM
     Route: 030
     Dates: start: 20021101

REACTIONS (14)
  - ASTHENIA [None]
  - ASTHMA [None]
  - CHILLS [None]
  - CHOLELITHIASIS [None]
  - DIABETES MELLITUS [None]
  - DYSKINESIA [None]
  - FATIGUE [None]
  - FEELING COLD [None]
  - GASTROENTERITIS VIRAL [None]
  - NEUROGENIC BLADDER [None]
  - PANCREATITIS ACUTE [None]
  - PNEUMONIA [None]
  - RENAL DISORDER [None]
  - WEIGHT DECREASED [None]
